FAERS Safety Report 5950626-9 (Version None)
Quarter: 2008Q4

REPORT INFORMATION
  Report Type: 
  Country: None (occurrence: None)
  Receive Date: 20081112
  Receipt Date: 20081106
  Transmission Date: 20090506
  Serious: Yes (Life-Threatening)
  Sender: FDA-Public Use
  Company Number: JP-AVENTIS-200813283JP

PATIENT
  Age: 77 Year
  Sex: Female
  Weight: 52.2 kg

DRUGS (7)
  1. AMARYL [Suspect]
     Indication: DIABETES MELLITUS
     Route: 048
     Dates: start: 20080609, end: 20081011
  2. CRAVIT [Suspect]
     Indication: URINARY TRACT INFECTION
     Route: 048
     Dates: start: 20081008, end: 20081014
  3. PREDNISOLONE [Concomitant]
     Indication: POLYMYALGIA RHEUMATICA
     Dosage: DOSE: 3 TABLETS
     Route: 048
     Dates: start: 20080728, end: 20081014
  4. LASIX [Concomitant]
     Dosage: DOSE: 1 TABLET
     Route: 048
     Dates: start: 20081008, end: 20081014
  5. ALDACTONE [Concomitant]
     Dosage: DOSE: 1 TABLET
     Route: 048
     Dates: start: 20081008, end: 20081014
  6. MAGMITT [Concomitant]
     Indication: CONSTIPATION
     Dosage: DOSE: 1 TABLET
     Route: 048
     Dates: start: 20080827, end: 20081014
  7. ACTOS [Concomitant]
     Indication: DIABETES MELLITUS
     Dosage: DOSE: 1 TABLET
     Dates: start: 20080601, end: 20081008

REACTIONS (4)
  - ALTERED STATE OF CONSCIOUSNESS [None]
  - BLOOD PRESSURE INCREASED [None]
  - DRUG INTERACTION [None]
  - HYPOGLYCAEMIA [None]
